FAERS Safety Report 7979068-1 (Version None)
Quarter: 2011Q4

REPORT INFORMATION
  Report Type: 
  Country: None (occurrence: None)
  Receive Date: 20111214
  Receipt Date: 20111208
  Transmission Date: 20120403
  Serious: No
  Sender: FDA-Public Use
  Company Number: US-PFIZER INC-2011302315

PATIENT
  Sex: Female

DRUGS (3)
  1. FLECTOR [Suspect]
     Dosage: UNK
     Route: 062
     Dates: start: 20111203
  2. FLECTOR [Suspect]
     Dosage: UNK
     Route: 062
     Dates: start: 20111202
  3. FLECTOR [Suspect]
     Dosage: UNK
     Route: 062
     Dates: start: 20111205

REACTIONS (2)
  - PRODUCT ADHESION ISSUE [None]
  - DRUG INEFFECTIVE [None]
